FAERS Safety Report 17505474 (Version 1)
Quarter: 2020Q1

REPORT INFORMATION
  Report Type: Spontaneous
  Country: US (occurrence: US)
  Receive Date: 20200306
  Receipt Date: 20200306
  Transmission Date: 20200409
  Serious: Yes (Death, Hospitalization)
  Sender: FDA-Public Use
  Company Number: US-TEVA-2020-US-1193408

PATIENT
  Age: 47 Year
  Sex: Male

DRUGS (1)
  1. TRAMADOL. [Suspect]
     Active Substance: TRAMADOL
     Dosage: 50MG
     Route: 048

REACTIONS (7)
  - Pulseless electrical activity [Unknown]
  - Accidental exposure to product [Unknown]
  - Wrong product administered [Unknown]
  - Seizure [Unknown]
  - Nausea [Unknown]
  - Confusional state [Unknown]
  - Toxicity to various agents [Fatal]
